FAERS Safety Report 5872353-9 (Version None)
Quarter: 2008Q3

REPORT INFORMATION
  Report Type: 
  Country: None (occurrence: None)
  Receive Date: 20080905
  Receipt Date: 20080827
  Transmission Date: 20090109
  Serious: Yes (Hospitalization, Other)
  Sender: FDA-Public Use
  Company Number: JP-AVENTIS-200818176GDDC

PATIENT
  Age: 76 Year
  Sex: Male

DRUGS (2)
  1. FLUOROURACIL [Suspect]
     Route: 040
  2. LEUCOVORIN CALCIUM [Concomitant]
     Route: 040

REACTIONS (1)
  - PNEUMATOSIS INTESTINALIS [None]
